FAERS Safety Report 8910642 (Version 1)
Quarter: 2012Q4

REPORT INFORMATION
  Report Type: Spontaneous
  Country: SG (occurrence: None)
  Receive Date: 20121108
  Receipt Date: 20121108
  Transmission Date: 20130627
  Serious: Yes (Other)
  Sender: FDA-Public Use
  Company Number: DSA_60767_2012

PATIENT
  Age: 67 Year
  Sex: Female

DRUGS (1)
  1. FLAGYL [Suspect]
     Indication: PRODUCT USED FOR UNKNOWN INDICATION
     Dosage: (DF Intravenous (not otherwise specified))
     Route: 042

REACTIONS (1)
  - Anaphylactic shock [None]
